FAERS Safety Report 10242202 (Version 1)
Quarter: 2014Q2

REPORT INFORMATION
  Report Type: Spontaneous
  Country: US (occurrence: US)
  Receive Date: 20140617
  Receipt Date: 20140617
  Transmission Date: 20141212
  Serious: Yes (Other)
  Sender: FDA-Public Use
  Company Number: US-JNJFOC-20140608581

PATIENT
  Age: 46 Year
  Sex: Male

DRUGS (2)
  1. OLYSIO [Suspect]
     Indication: CHRONIC HEPATITIS C
     Route: 065
     Dates: start: 20140422
  2. SOVALDI [Suspect]
     Indication: CHRONIC HEPATITIS C
     Route: 065
     Dates: start: 20140422

REACTIONS (8)
  - Blood albumin decreased [Unknown]
  - Glomerular filtration rate abnormal [Unknown]
  - Fatigue [Unknown]
  - Dyspepsia [Unknown]
  - Abdominal pain [Unknown]
  - Platelet count decreased [Unknown]
  - Renal impairment [Unknown]
  - Off label use [Unknown]
